FAERS Safety Report 8311913-2 (Version None)
Quarter: 2012Q2

REPORT INFORMATION
  Report Type: 
  Country: None (occurrence: None)
  Receive Date: 20120425
  Receipt Date: 20120420
  Transmission Date: 20120825
  Serious: No
  Sender: FDA-Public Use
  Company Number: US-B.I. PHARMACEUTICALS,INC./RIDGEFIELD-2012-BP-09288BP

PATIENT
  Sex: Male

DRUGS (6)
  1. ALBUTEROL [Concomitant]
     Indication: CHRONIC OBSTRUCTIVE PULMONARY DISEASE
     Route: 055
  2. LISINOPRIL [Concomitant]
  3. SYMBICORT [Concomitant]
     Indication: CHRONIC OBSTRUCTIVE PULMONARY DISEASE
     Route: 055
  4. METOPROLOL TARTRATE [Concomitant]
     Indication: HYPERTENSION
  5. SPIRIVA [Suspect]
     Indication: CHRONIC OBSTRUCTIVE PULMONARY DISEASE
     Dosage: 18 MCG
     Route: 055
     Dates: start: 20101101
  6. LORATADINE [Concomitant]
     Indication: HYPERSENSITIVITY

REACTIONS (2)
  - COUGH [None]
  - FOREIGN BODY [None]
